FAERS Safety Report 6216789-5 (Version None)
Quarter: 2009Q2

REPORT INFORMATION
  Report Type: 
  Country: None (occurrence: None)
  Receive Date: 20090603
  Receipt Date: 20090603
  Transmission Date: 20091009
  Serious: Yes (Disabling)
  Sender: FDA-Public Use
  Company Number: None

PATIENT
  Age: 19 Year
  Sex: Male
  Weight: 74.8435 kg

DRUGS (1)
  1. PROPECIA [Suspect]

REACTIONS (3)
  - EJACULATION FAILURE [None]
  - ERECTILE DYSFUNCTION [None]
  - LOSS OF LIBIDO [None]
